FAERS Safety Report 9295664 (Version 3)
Quarter: 2013Q3

REPORT INFORMATION
  Report Type: Report from Study
  Country: CN (occurrence: CN)
  Receive Date: 20130517
  Receipt Date: 20130805
  Transmission Date: 20140515
  Serious: Yes (Hospitalization)
  Sender: FDA-Public Use
  Company Number: CN-ROCHE-1225747

PATIENT
  Age: 55 Year
  Sex: Female
  Weight: 52 kg

DRUGS (2)
  1. AVASTIN [Suspect]
     Indication: COLON CANCER
     Route: 042
     Dates: start: 20120706
  2. AVASTIN [Suspect]
     Route: 042
     Dates: start: 20121009, end: 20130411

REACTIONS (4)
  - Blood albumin decreased [Not Recovered/Not Resolved]
  - Decreased appetite [Unknown]
  - Lung infection [Not Recovered/Not Resolved]
  - Gastrointestinal haemorrhage [Recovering/Resolving]
